FAERS Safety Report 9713084 (Version 1)
Quarter: 2013Q4

REPORT INFORMATION
  Report Type: Spontaneous
  Country: US (occurrence: US)
  Receive Date: 20131126
  Receipt Date: 20131126
  Transmission Date: 20140711
  Serious: No
  Sender: FDA-Public Use
  Company Number: US-BRISTOL-MYERS SQUIBB COMPANY-19417989

PATIENT
  Age: 64 Year
  Sex: Female
  Weight: 63.49 kg

DRUGS (1)
  1. BYDUREON 2MG SUSPENSION [Suspect]
     Indication: TYPE 2 DIABETES MELLITUS
     Dosage: INTERUPTED:MAR-2013?16-SEP-2013
     Route: 058
     Dates: start: 201302

REACTIONS (10)
  - Drug dose omission [Unknown]
  - Blood glucose decreased [Unknown]
  - Sinusitis [Unknown]
  - Weight decreased [Unknown]
  - Trichorrhexis [Unknown]
  - Injection site haemorrhage [Unknown]
  - Injection site extravasation [Unknown]
  - Injection site swelling [Recovering/Resolving]
  - Injection site pain [Unknown]
  - Underdose [Unknown]
